FAERS Safety Report 9658633 (Version 2)
Quarter: 2013Q4

REPORT INFORMATION
  Report Type: Spontaneous
  Country: US (occurrence: US)
  Receive Date: 20131030
  Receipt Date: 20131030
  Transmission Date: 20140711
  Serious: No
  Sender: FDA-Public Use
  Company Number: US-PURDUE-USA-2010-0057942

PATIENT
  Sex: Male

DRUGS (3)
  1. OXYCONTIN (NDA 22-272) [Suspect]
     Indication: PAIN
     Dosage: 240 MG, AM
     Dates: start: 201008
  2. OXYCONTIN (NDA 22-272) [Suspect]
     Indication: NEURALGIA
     Dosage: 240 MG, DAILY
     Dates: start: 2010
  3. OXYCONTIN (NDA 22-272) [Suspect]
     Dosage: 320 MG, PM
     Dates: start: 2010

REACTIONS (5)
  - Pain [Unknown]
  - Drug ineffective [Unknown]
  - Somnolence [Unknown]
  - Fatigue [Unknown]
  - Malaise [Unknown]
